FAERS Safety Report 5675915-7 (Version None)
Quarter: 2008Q1

REPORT INFORMATION
  Report Type: 
  Country: None (occurrence: None)
  Receive Date: 20080321
  Receipt Date: 20080314
  Transmission Date: 20080703
  Serious: Yes (Hospitalization)
  Sender: FDA-Public Use
  Company Number: B0511753A

PATIENT
  Sex: Female

DRUGS (11)
  1. AVANDIA [Suspect]
     Indication: TYPE 2 DIABETES MELLITUS
     Dosage: 4MG PER DAY
     Route: 065
     Dates: start: 20051118, end: 20060701
  2. ASPIRIN [Concomitant]
     Indication: MYOCARDIAL ISCHAEMIA
     Route: 065
  3. BRICANYL [Concomitant]
     Indication: CHRONIC OBSTRUCTIVE PULMONARY DISEASE
     Route: 065
  4. DIAMICRON [Concomitant]
     Indication: TYPE 2 DIABETES MELLITUS
     Dosage: 80MG TWICE PER DAY
     Route: 065
  5. FELOCOR [Concomitant]
     Indication: HYPERTENSION
     Route: 065
  6. MINIPRESS [Concomitant]
     Indication: HYPERTENSION
     Route: 065
  7. UNKNOWN DRUG [Concomitant]
     Indication: INSOMNIA
     Dosage: 15MG AT NIGHT
     Route: 065
  8. UNKNOWN DRUG [Concomitant]
     Indication: CHRONIC OBSTRUCTIVE PULMONARY DISEASE
     Dosage: 10MG PER DAY
     Route: 065
  9. TRITACE [Concomitant]
     Indication: HYPERTENSION
     Dosage: 10MG PER DAY
     Route: 065
  10. ZOCOR [Concomitant]
     Dosage: 40MG AT NIGHT
     Route: 065
  11. ZOLOFT [Concomitant]
     Dosage: 100MG AT NIGHT
     Route: 065

REACTIONS (4)
  - CARDIAC FAILURE [None]
  - DYSPNOEA [None]
  - FLUID RETENTION [None]
  - WEIGHT INCREASED [None]
